FAERS Safety Report 8928595 (Version 3)
Quarter: 2015Q2

REPORT INFORMATION
  Report Type: Spontaneous
  Country: US (occurrence: US)
  Receive Date: 20121128
  Receipt Date: 20150512
  Transmission Date: 20150821
  Serious: Yes (Death, Hospitalization, Congenital Anomaly, Other)
  Sender: FDA-Public Use
  Company Number: US-ELI_LILLY_AND_COMPANY-US201211005371

PATIENT
  Sex: Female

DRUGS (5)
  1. PROZAC [Suspect]
     Active Substance: FLUOXETINE HYDROCHLORIDE
     Indication: DEPRESSION
     Dosage: UNK
     Route: 064
  2. METRONIDAZOLE. [Concomitant]
     Active Substance: METRONIDAZOLE
  3. ACETAMINOPHEN AND CODEINE [Concomitant]
     Active Substance: ACETAMINOPHEN\CODEINE PHOSPHATE
  4. PROPOXYPHENE N/APAP [Concomitant]
  5. AMOXICILLIN. [Concomitant]
     Active Substance: AMOXICILLIN

REACTIONS (10)
  - Cor pulmonale [Fatal]
  - Nervous system disorder [Unknown]
  - Foot deformity [Unknown]
  - Hernia [Unknown]
  - Respiratory disorder neonatal [Unknown]
  - Premature baby [Unknown]
  - Congenital diaphragmatic hernia [Unknown]
  - Foetal exposure during pregnancy [Recovered/Resolved]
  - Convulsion neonatal [Unknown]
  - Polyhydramnios [Unknown]
